FAERS Safety Report 6289037-8 (Version None)
Quarter: 2009Q3

REPORT INFORMATION
  Report Type: 
  Country: None (occurrence: None)
  Receive Date: 20090729
  Receipt Date: 20090619
  Transmission Date: 20100115
  Serious: Yes (Hospitalization, Other)
  Sender: FDA-Public Use
  Company Number: PHHO2006IL01061

PATIENT
  Sex: Male

DRUGS (23)
  1. CYCLOSPORINE [Suspect]
     Indication: RENAL TRANSPLANT
     Dosage: 150 MG, BID
     Route: 048
     Dates: start: 20040617
  2. MYCOPHENOLATE MOFETIL [Suspect]
     Indication: RENAL TRANSPLANT
     Dosage: 1 G, BID
     Route: 048
     Dates: start: 20040617
  3. MYCOPHENOLATE MOFETIL [Suspect]
     Dosage: 500 MG, BID
     Route: 048
     Dates: start: 20040902
  4. MYCOPHENOLATE MOFETIL [Suspect]
     Dosage: 250 MG, BID
     Route: 048
  5. MYCOPHENOLATE MOFETIL [Suspect]
     Dosage: 500 MG, BID
     Route: 048
     Dates: start: 20041124, end: 20041214
  6. MYCOPHENOLATE MOFETIL [Suspect]
     Dosage: 500 MG, BID
     Route: 048
  7. VALGANCICLOVIR HCL [Suspect]
     Dosage: UNK, UNK
     Dates: start: 20040615, end: 20040823
  8. PREDNISONE [Suspect]
     Dosage: UNK, UNK
     Route: 048
     Dates: start: 20040614
  9. PREDNISONE [Suspect]
     Dosage: UNK, UNK
     Route: 048
     Dates: start: 20040917
  10. PREDNISONE [Suspect]
     Dosage: UNK, UNK
     Route: 048
  11. PREDNISOLONE [Suspect]
     Dosage: UNK, UNK
     Route: 048
     Dates: start: 20040816
  12. DACLIZUMAB [Suspect]
     Indication: RENAL TRANSPLANT
     Dosage: 2 MG/KG, ONCE/SINGLE
     Route: 042
     Dates: start: 20040617
  13. DACLIZUMAB [Suspect]
     Dosage: 82 MG, ONCE/SINGLE EVERY TWO WEEKS
     Route: 042
  14. SOLU-MEDROL [Suspect]
     Indication: RENAL TRANSPLANT
     Dosage: 125 MG / DAY
     Route: 042
     Dates: start: 20040617, end: 20040619
  15. SIMVASTATIN [Concomitant]
  16. ATENOLOL [Concomitant]
  17. DOXAZOSIN MESYLATE [Concomitant]
  18. COTRIM [Concomitant]
  19. FUROSEMIDE [Concomitant]
  20. ACARBOSE [Concomitant]
  21. CHLORPROMAZINE [Concomitant]
     Dates: start: 20041115
  22. ATORVASTATIN [Concomitant]
  23. HEPARIN [Concomitant]

REACTIONS (14)
  - CHILLS [None]
  - EPIDIDYMITIS [None]
  - FEBRILE NEUTROPENIA [None]
  - HAEMATURIA [None]
  - KAPOSI'S SARCOMA [None]
  - KLEBSIELLA INFECTION [None]
  - NEUTROPHIL COUNT DECREASED [None]
  - ORCHITIS [None]
  - PYREXIA [None]
  - SKIN LESION [None]
  - TESTICULAR PAIN [None]
  - TESTICULAR SWELLING [None]
  - URINARY TRACT INFECTION [None]
  - WHITE BLOOD CELL COUNT DECREASED [None]
